FAERS Safety Report 9339738 (Version 1)
Quarter: 2013Q2

REPORT INFORMATION
  Report Type: Spontaneous
  Country: DE (occurrence: None)
  Receive Date: 20130605
  Receipt Date: 20130605
  Transmission Date: 20140414
  Serious: Yes (Hospitalization)
  Sender: FDA-Public Use
  Company Number: FK201301872

PATIENT
  Age: 66 Year
  Sex: Female
  Weight: 45 kg

DRUGS (1)
  1. CARBOPLATIN (MANUFACTURER UNKNOWN) (CARBOPLATIN) (CARBOPLATIN) [Suspect]
     Indication: OVARIAN CANCER
     Dosage: 130 MG, INTRAVENOUS (NOT OTHERWISE SPECIFIED)

REACTIONS (2)
  - Hypersensitivity [None]
  - Cardiovascular disorder [None]
